FAERS Safety Report 6610194-5 (Version None)
Quarter: 2010Q1

REPORT INFORMATION
  Report Type: 
  Country: None (occurrence: None)
  Receive Date: 20100216
  Receipt Date: 20090518
  Transmission Date: 20100710
  Serious: Yes (Other)
  Sender: FDA-Public Use
  Company Number: MC200900194

PATIENT
  Age: 73 Year
  Sex: Male
  Weight: 90.7 kg

DRUGS (4)
  1. ANGIOMAX [Suspect]
     Indication: OFF LABEL USE
     Dosage: 0.75 MG/KG, BOLUS, INTRAVENOUS, 1.75 MG/KG, HR, INTRAVEN
     Route: 042
     Dates: start: 20090516, end: 20090516
  2. ANGIOMAX [Suspect]
     Indication: VENOUS OCCLUSION
     Dosage: 0.75 MG/KG, BOLUS, INTRAVENOUS, 1.75 MG/KG, HR, INTRAVEN
     Route: 042
     Dates: start: 20090516, end: 20090516
  3. ANGIOMAX [Suspect]
     Indication: OFF LABEL USE
     Dosage: 0.75 MG/KG, BOLUS, INTRAVENOUS, 1.75 MG/KG, HR, INTRAVEN
     Route: 042
     Dates: start: 20090516, end: 20090516
  4. ANGIOMAX [Suspect]
     Indication: VENOUS OCCLUSION
     Dosage: 0.75 MG/KG, BOLUS, INTRAVENOUS, 1.75 MG/KG, HR, INTRAVEN
     Route: 042
     Dates: start: 20090516, end: 20090516

REACTIONS (1)
  - OPERATIVE HAEMORRHAGE [None]
